FAERS Safety Report 10042459 (Version 1)
Quarter: 2014Q1

REPORT INFORMATION
  Report Type: Spontaneous
  Country: NL (occurrence: NL)
  Receive Date: 20140327
  Receipt Date: 20140327
  Transmission Date: 20141002
  Serious: Yes (Other)
  Sender: FDA-Public Use
  Company Number: NL-ASTRAZENECA-2014SE19366

PATIENT
  Age: 24347 Day
  Sex: Female

DRUGS (1)
  1. FASLODEX [Suspect]
     Indication: METASTASES TO BREAST
     Route: 030
     Dates: start: 20140225, end: 20140311

REACTIONS (4)
  - Anal neoplasm [Unknown]
  - Abdominal pain [Not Recovered/Not Resolved]
  - Adverse event [Not Recovered/Not Resolved]
  - Diarrhoea [Not Recovered/Not Resolved]
